FAERS Safety Report 14872359 (Version 1)
Quarter: 2018Q2

REPORT INFORMATION
  Report Type: Spontaneous
  Country: US (occurrence: US)
  Receive Date: 20180510
  Receipt Date: 20180510
  Transmission Date: 20180711
  Serious: No
  Sender: FDA-Public Use
  Company Number: US-ASTRAZENECA-2018SE56897

PATIENT
  Age: 800 Month
  Sex: Male
  Weight: 97.5 kg

DRUGS (10)
  1. BYDUREON BCISE [Suspect]
     Active Substance: EXENATIDE
     Indication: GLYCOSYLATED HAEMOGLOBIN
     Route: 058
     Dates: start: 201803
  2. METFORMIN [Concomitant]
     Active Substance: METFORMIN HYDROCHLORIDE
     Indication: GLYCOSYLATED HAEMOGLOBIN
     Route: 048
  3. CITALOPRAM [Concomitant]
     Active Substance: CITALOPRAM HYDROBROMIDE
     Indication: NERVOUSNESS
     Route: 048
  4. CITALOPRAM [Concomitant]
     Active Substance: CITALOPRAM HYDROBROMIDE
     Indication: ANXIETY
     Route: 048
  5. FARXIGA [Suspect]
     Active Substance: DAPAGLIFLOZIN PROPANEDIOL
     Indication: GLYCOSYLATED HAEMOGLOBIN
     Route: 048
  6. GLIMEPIRIDE. [Concomitant]
     Active Substance: GLIMEPIRIDE
     Indication: GLYCOSYLATED HAEMOGLOBIN
     Route: 048
  7. PRAVASTATIN. [Concomitant]
     Active Substance: PRAVASTATIN
     Indication: BLOOD CHOLESTEROL ABNORMAL
     Route: 048
  8. LOSARTAN POTASSIUM. [Concomitant]
     Active Substance: LOSARTAN POTASSIUM
     Indication: BLOOD PRESSURE ABNORMAL
     Route: 048
  9. BYDUREON [Suspect]
     Active Substance: EXENATIDE
     Indication: GLYCOSYLATED HAEMOGLOBIN
     Route: 058
     Dates: start: 201803
  10. FARXIGA [Suspect]
     Active Substance: DAPAGLIFLOZIN PROPANEDIOL
     Indication: GLYCOSYLATED HAEMOGLOBIN
     Route: 048

REACTIONS (5)
  - Glycosylated haemoglobin [Unknown]
  - Axillary mass [Not Recovered/Not Resolved]
  - Anxiety [Unknown]
  - Condition aggravated [Unknown]
  - Circumstance or information capable of leading to device use error [Not Recovered/Not Resolved]

NARRATIVE: CASE EVENT DATE: 201803
